FAERS Safety Report 5001558-4 (Version None)
Quarter: 2006Q2

REPORT INFORMATION
  Report Type: 
  Country: None (occurrence: None)
  Receive Date: 20060515
  Receipt Date: 20060509
  Transmission Date: 20061013
  Serious: Yes (Hospitalization)
  Sender: FDA-Public Use
  Company Number: PHRM2006FR01516

PATIENT
  Age: 50 Year
  Sex: Female
  Weight: 100 kg

DRUGS (8)
  1. TEGRETOL [Suspect]
     Indication: DYSTHYMIC DISORDER
     Dosage: 600 MG, QD
     Route: 048
     Dates: start: 20030203, end: 20060309
  2. EFFEXOR [Suspect]
     Indication: DYSTHYMIC DISORDER
     Dosage: 100 MG, QD
     Route: 048
     Dates: start: 20040405, end: 20060309
  3. SEGLOR [Suspect]
     Dosage: 2 DF DAILY
     Route: 048
     Dates: start: 20041116, end: 20060309
  4. THERALENE [Concomitant]
     Indication: DYSTHYMIC DISORDER
     Route: 048
     Dates: start: 20040401
  5. ATARAX [Concomitant]
     Route: 048
     Dates: start: 20040401
  6. TERCIAN [Concomitant]
     Indication: DYSTHYMIC DISORDER
     Route: 048
     Dates: start: 20030101
  7. VENTOLIN [Concomitant]
     Indication: ASTHMA
     Dosage: UNK, PRN
  8. SOLUPRED [Concomitant]
     Indication: ASTHMA
     Dosage: UNK, PRN

REACTIONS (8)
  - ALVEOLITIS [None]
  - BRONCHOPNEUMOPATHY [None]
  - CHEST X-RAY ABNORMAL [None]
  - CHRONIC OBSTRUCTIVE PULMONARY DISEASE [None]
  - HYPOXIA [None]
  - PERICARDIAL EFFUSION [None]
  - PLEURAL EFFUSION [None]
  - PYREXIA [None]
